FAERS Safety Report 9874629 (Version 2)
Quarter: 2014Q1

REPORT INFORMATION
  Report Type: Spontaneous
  Country: CH (occurrence: CH)
  Receive Date: 20140206
  Receipt Date: 20140206
  Transmission Date: 20141002
  Serious: Yes (Other)
  Sender: FDA-Public Use
  Company Number: PHHY2012CH073216

PATIENT
  Age: 38 Year
  Sex: Female

DRUGS (10)
  1. CIP ECO [Suspect]
     Indication: NASOPHARYNGITIS
     Dosage: 500 MG, Q12H
     Route: 048
     Dates: start: 20120713, end: 20120717
  2. PREDNISONE [Suspect]
     Indication: NASOPHARYNGITIS
     Dosage: 40 MG, Q12H
     Route: 048
     Dates: start: 20120713, end: 20120718
  3. IBUPROFEN [Suspect]
     Dosage: 3 DF, QD
     Dates: start: 20120713, end: 20120717
  4. ZALDIAR [Suspect]
     Indication: NASOPHARYNGITIS
     Dosage: 1 DF, Q12H
     Dates: start: 20120713, end: 20120716
  5. NASONEX [Suspect]
     Indication: NASOPHARYNGITIS
     Dosage: 100 UG, Q12H
     Route: 048
     Dates: start: 20120713, end: 20120716
  6. MUCOSOLVON [Concomitant]
     Dates: start: 20120713, end: 20120713
  7. AUGMENTIN [Concomitant]
     Dosage: 3 DF, QD
     Dates: start: 20120717, end: 20120723
  8. CORTINASAL [Concomitant]
     Dosage: 3 DF, QD
     Dates: start: 20120717, end: 20120721
  9. RINOFLUIMUCIL [Concomitant]
     Dosage: 2 DF, UNK
     Dates: start: 20120717
  10. DAFALGAN [Concomitant]
     Dates: start: 20120717

REACTIONS (2)
  - Abortion induced [Recovered/Resolved]
  - Maternal exposure during pregnancy [Unknown]
